FAERS Safety Report 5857524-X (Version None)
Quarter: 2008Q3

REPORT INFORMATION
  Report Type: 
  Country: None (occurrence: None)
  Receive Date: 20080826
  Receipt Date: 20080815
  Transmission Date: 20090109
  Serious: Yes (Hospitalization)
  Sender: FDA-Public Use
  Company Number: DE-ROCHE-581484

PATIENT

DRUGS (3)
  1. CELLCEPT [Suspect]
     Indication: DRUG USE FOR UNKNOWN INDICATION
     Route: 065
  2. TACROLIMUS [Suspect]
     Indication: LUNG TRANSPLANT
     Route: 065
  3. STEROID NOS [Concomitant]
     Dosage: DRUG NAME: STEROIDEN
     Route: 065

REACTIONS (2)
  - OBLITERATIVE BRONCHIOLITIS [None]
  - ORGAN FAILURE [None]
